FAERS Safety Report 26044095 (Version 1)
Quarter: 2025Q4

REPORT INFORMATION
  Report Type: Spontaneous
  Country: CA (occurrence: CA)
  Receive Date: 20251114
  Receipt Date: 20251114
  Transmission Date: 20260118
  Serious: Yes (Other)
  Sender: CHEPLAPHARM
  Company Number: CA-CHEPLA-2025012822

PATIENT
  Age: 41 Year
  Sex: Female

DRUGS (12)
  1. CAPECITABINE [Suspect]
     Active Substance: CAPECITABINE
     Indication: Product used for unknown indication
  2. TUKYSA [Suspect]
     Active Substance: TUCATINIB
     Indication: Breast cancer metastatic
     Dosage: 2 IN EVERY 1 DAYS?DAILY DOSE: 400 MILLIGRAM
     Route: 048
  3. TUKYSA [Suspect]
     Active Substance: TUCATINIB
     Indication: Breast cancer metastatic
     Dosage: 2 IN EVERY 1 DAYS?DAILY DOSE: 300 MILLIGRAM
     Route: 048
  4. TUKYSA [Suspect]
     Active Substance: TUCATINIB
     Indication: Breast cancer metastatic
     Dosage: 2 IN EVERY 1 DAYS?DAILY DOSE: 400 MILLIGRAM
     Route: 048
  5. TUKYSA [Suspect]
     Active Substance: TUCATINIB
     Indication: Breast cancer metastatic
  6. TUKYSA [Suspect]
     Active Substance: TUCATINIB
     Indication: Breast cancer metastatic
  7. LOPERAMIDE [Concomitant]
     Active Substance: LOPERAMIDE
  8. Netupitant/Palonosetron hydrochloride [Concomitant]
  9. OLANZAPINE [Concomitant]
     Active Substance: OLANZAPINE
  10. PROCHLORPERAZINE [Concomitant]
     Active Substance: PROCHLORPERAZINE
  11. SUCRALFATE [Concomitant]
     Active Substance: SUCRALFATE
  12. GOSERELIN [Concomitant]
     Active Substance: GOSERELIN

REACTIONS (6)
  - Blood bilirubin increased [Not Recovered/Not Resolved]
  - Breast cancer metastatic [Not Recovered/Not Resolved]
  - Fatigue [Not Recovered/Not Resolved]
  - Headache [Not Recovered/Not Resolved]
  - Malignant neoplasm progression [Not Recovered/Not Resolved]
  - Palmar-plantar erythrodysaesthesia syndrome [Not Recovered/Not Resolved]
